FAERS Safety Report 23409235 (Version 1)
Quarter: 2024Q1

REPORT INFORMATION
  Report Type: Other
  Country: None (occurrence: US)
  Receive Date: 20240117
  Receipt Date: 20240117
  Transmission Date: 20240409
  Serious: Yes (Other)
  Sender: FDA-Public Use
  Company Number: US-Creekwood Pharmaceuticals LLC-2151405

PATIENT
  Age: 58 Year
  Sex: Female

DRUGS (1)
  1. PREGABALIN [Suspect]
     Active Substance: PREGABALIN
     Indication: Product used for unknown indication
     Route: 065

REACTIONS (4)
  - Cardiotoxicity [Unknown]
  - Electrocardiogram T wave inversion [Unknown]
  - Bundle branch block left [Recovered/Resolved]
  - Overdose [Unknown]
